FAERS Safety Report 13037426 (Version 1)
Quarter: 2016Q4

REPORT INFORMATION
  Report Type: Report from Study
  Country: US (occurrence: US)
  Receive Date: 20161216
  Receipt Date: 20161216
  Transmission Date: 20170207
  Serious: Yes (Other)
  Sender: FDA-Public Use
  Company Number: US-JAZZ-2016-US-023999

PATIENT

DRUGS (1)
  1. XYREM [Suspect]
     Active Substance: SODIUM OXYBATE
     Indication: PRODUCT USED FOR UNKNOWN INDICATION
     Route: 048

REACTIONS (15)
  - Stress [Unknown]
  - Confusional state [Unknown]
  - Autism [Unknown]
  - Nervous system disorder [Not Recovered/Not Resolved]
  - Dry eye [Unknown]
  - Condition aggravated [Unknown]
  - Bladder disorder [Unknown]
  - Urinary retention [Unknown]
  - Asthenia [Unknown]
  - Sensory loss [Unknown]
  - Tremor [Unknown]
  - Vitreous detachment [Not Recovered/Not Resolved]
  - Communication disorder [Unknown]
  - Punctate keratitis [Unknown]
  - Hypoaesthesia [Unknown]
